FAERS Safety Report 6491631-6 (Version None)
Quarter: 2009Q4

REPORT INFORMATION
  Report Type: 
  Country: None (occurrence: None)
  Receive Date: 20091125
  Receipt Date: 20090303
  Transmission Date: 20100525
  Serious: Yes (Hospitalization)
  Sender: FDA-Public Use
  Company Number: 2009BH003647

PATIENT
  Age: 45 Year
  Sex: Male

DRUGS (13)
  1. DIANEAL [Suspect]
     Indication: PERITONEAL DIALYSIS
     Dosage: 12 L ; EVERY DAY ; IP
     Route: 033
     Dates: start: 20080424
  2. DIANEAL [Suspect]
     Indication: PERITONEAL DIALYSIS
     Dosage: ; PRN ; IP
     Route: 033
     Dates: start: 20080424
  3. EPOGEN [Concomitant]
  4. PHOSLO [Concomitant]
  5. ACTOS [Concomitant]
  6. LOVAZA [Concomitant]
  7. ZEMPLAR [Concomitant]
  8. DILTIAZEM [Concomitant]
  9. LISINOPRIL [Concomitant]
  10. DUCOSATE [Concomitant]
  11. LASIX [Concomitant]
  12. NEPHROVITE [Concomitant]
  13. LOVASTATIN [Concomitant]

REACTIONS (2)
  - FATIGUE [None]
  - PERITONITIS BACTERIAL [None]
